FAERS Safety Report 7321579-6 (Version None)
Quarter: 2011Q1

REPORT INFORMATION
  Report Type: 
  Country: None (occurrence: None)
  Receive Date: 20110228
  Receipt Date: 20100604
  Transmission Date: 20110831
  Serious: No
  Sender: FDA-Public Use
  Company Number: A0864367A

PATIENT
  Sex: Male

DRUGS (2)
  1. VALTREX [Suspect]
     Route: 065
  2. ACYCLOVIR [Suspect]
     Route: 065

REACTIONS (3)
  - HERPES VIRUS INFECTION [None]
  - VIRAL LOAD INCREASED [None]
  - DRUG INEFFECTIVE [None]
